FAERS Safety Report 5040621-9 (Version None)
Quarter: 2006Q2

REPORT INFORMATION
  Report Type: 
  Country: None (occurrence: None)
  Receive Date: 20060626
  Receipt Date: 20060626
  Transmission Date: 20061013
  Serious: Yes (Hospitalization)
  Sender: FDA-Public Use
  Company Number: None

PATIENT
  Sex: Male
  Weight: 9.5 kg

DRUGS (5)
  1. CYTARABINE [Suspect]
     Dosage: 30 MG INTRATHECAL
     Route: 037
  2. DEXAMETHASONE TAB [Suspect]
     Dosage: 66 MG
  3. METHOTREXATE [Suspect]
     Dosage: 8 MG INTRATHECAL
     Route: 037
  4. PEG-L-ASPARGINASE (K-H) [Suspect]
     Dosage: 1100 IU
  5. VINCRISTINE SULFATE [Suspect]
     Dosage: 2.1 MG

REACTIONS (20)
  - ALANINE AMINOTRANSFERASE INCREASED [None]
  - ASPARTATE AMINOTRANSFERASE INCREASED [None]
  - BLOOD PRESSURE DECREASED [None]
  - CARDIO-RESPIRATORY ARREST [None]
  - CONVULSION [None]
  - DISSEMINATED INTRAVASCULAR COAGULATION [None]
  - ERYTHEMA [None]
  - ESCHAR [None]
  - GENERAL PHYSICAL HEALTH DETERIORATION [None]
  - HYPONATRAEMIA [None]
  - INCISION SITE ERYTHEMA [None]
  - INCISIONAL DRAINAGE [None]
  - IRRITABILITY [None]
  - LETHARGY [None]
  - MIOSIS [None]
  - PLEURAL EFFUSION [None]
  - RASH PAPULAR [None]
  - RASH VESICULAR [None]
  - RESPIRATORY DISTRESS [None]
  - SEPSIS [None]
